FAERS Safety Report 12276383 (Version 1)
Quarter: 2016Q2

REPORT INFORMATION
  Report Type: Spontaneous
  Country: JP (occurrence: JP)
  Receive Date: 20160418
  Receipt Date: 20160418
  Transmission Date: 20160815
  Serious: Yes (Hospitalization)
  Sender: FDA-Public Use
  Company Number: JP-ACCORD-039624

PATIENT
  Age: 62 Year
  Sex: Female
  Weight: 93.5 kg

DRUGS (3)
  1. FLUOROURACIL. [Suspect]
     Active Substance: FLUOROURACIL
     Indication: HEPATOCELLULAR CARCINOMA
     Dosage: 250 MG BOLUS ON DAY 1, 8, 5-FU 250 MG: DAY 1 TO 5, DAY 8 TO 12
     Route: 013
  2. IODIZED OIL [Concomitant]
     Active Substance: IODIZED OIL
  3. CISPLATIN. [Suspect]
     Active Substance: CISPLATIN
     Indication: HEPATOCELLULAR CARCINOMA
     Dosage: CDDP 50 MG

REACTIONS (3)
  - Pyrexia [Unknown]
  - Haematuria [Unknown]
  - Liver function test abnormal [Unknown]
